FAERS Safety Report 8390269-3 (Version None)
Quarter: 2012Q2

REPORT INFORMATION
  Report Type: 
  Country: None (occurrence: None)
  Receive Date: 20120529
  Receipt Date: 20120521
  Transmission Date: 20120825
  Serious: Yes (Other)
  Sender: FDA-Public Use
  Company Number: US-PFIZER INC-2012080773

PATIENT
  Sex: Male

DRUGS (3)
  1. NORVASC [Suspect]
     Dosage: 10 MG, 1X/DAY AM
     Route: 048
  2. ZOLOFT [Suspect]
     Dosage: 100 MG, 1X/DAY AM
     Route: 048
  3. NEURONTIN [Suspect]
     Dosage: 300 MG, 2X/DAY
     Route: 048

REACTIONS (2)
  - HEMIPLEGIA [None]
  - CEREBROVASCULAR ACCIDENT [None]
